FAERS Safety Report 6586501-9 (Version None)
Quarter: 2010Q1

REPORT INFORMATION
  Report Type: 
  Country: None (occurrence: None)
  Receive Date: 20100217
  Receipt Date: 20090316
  Transmission Date: 20100710
  Serious: No
  Sender: FDA-Public Use
  Company Number: US-ALLERGAN-0903551US

PATIENT
  Sex: Female

DRUGS (5)
  1. BOTOX COSMETIC [Suspect]
     Indication: SKIN WRINKLING
     Dosage: 40 UNITS, SINGLE
     Route: 030
     Dates: start: 20090311, end: 20090311
  2. BOTOX COSMETIC [Suspect]
     Dosage: UNK, SINGLE
     Route: 030
     Dates: start: 20081101, end: 20081101
  3. MEDICAL GLUE [Concomitant]
     Indication: EAR INJURY
     Dosage: UNK, UNK
     Route: 061
  4. CLARITIN [Concomitant]
  5. SINGULAIR [Concomitant]

REACTIONS (1)
  - RASH GENERALISED [None]
